FAERS Safety Report 12287130 (Version 2)
Quarter: 2016Q2

REPORT INFORMATION
  Report Type: Spontaneous
  Country: JP (occurrence: JP)
  Receive Date: 20160420
  Receipt Date: 20160505
  Transmission Date: 20160815
  Serious: Yes (Other)
  Sender: FDA-Public Use
  Company Number: JP-BAYER-2016-072808

PATIENT
  Age: 17 Year
  Sex: Female

DRUGS (5)
  1. YOKUKAN-SAN [Concomitant]
     Active Substance: UNSPECIFIED INGREDIENT
     Dosage: UNK
     Route: 048
  2. YAZ [Suspect]
     Active Substance: DROSPIRENONE\ETHINYL ESTRADIOL
     Dosage: 1 DF, UNK
     Route: 048
     Dates: start: 20150209, end: 20160424
  3. EVAMYL [Concomitant]
     Active Substance: LORMETAZEPAM
     Indication: PANIC DISORDER
     Dosage: UNK
     Route: 048
     Dates: start: 20151202
  4. ABILIFY [Suspect]
     Active Substance: ARIPIPRAZOLE
     Indication: PANIC DISORDER
     Dosage: UNK
     Route: 048
  5. HALCION [Concomitant]
     Active Substance: TRIAZOLAM
     Indication: PANIC DISORDER
     Dosage: 0.500 DF, UNK
     Route: 048

REACTIONS (2)
  - Metrorrhagia [None]
  - Seizure [Recovered/Resolved]

NARRATIVE: CASE EVENT DATE: 20160409
